FAERS Safety Report 11145982 (Version 1)
Quarter: 2015Q2

REPORT INFORMATION
  Report Type: Spontaneous
  Country: US (occurrence: None)
  Receive Date: 20150527
  Receipt Date: 20150527
  Transmission Date: 20150821
  Serious: Yes (Other)
  Sender: FDA-Public Use
  Company Number: None

PATIENT
  Age: 25 Year
  Sex: Female

DRUGS (1)
  1. ACCUTANE [Suspect]
     Active Substance: ISOTRETINOIN
     Indication: ACNE
     Route: 048
     Dates: start: 20050502, end: 20060531

REACTIONS (7)
  - Acne [None]
  - Depression [None]
  - Impaired healing [None]
  - Urticaria [None]
  - Drug effect decreased [None]
  - Disease recurrence [None]
  - Sunburn [None]

NARRATIVE: CASE EVENT DATE: 20050502
